FAERS Safety Report 5942361-8 (Version None)
Quarter: 2008Q4

REPORT INFORMATION
  Report Type: 
  Country: None (occurrence: None)
  Receive Date: 20081105
  Receipt Date: 20081031
  Transmission Date: 20090506
  Serious: Yes (Other)
  Sender: FDA-Public Use
  Company Number: US-B.I. PHARMACEUTICALS,INC./RIDGEFIELD-2008-BP-16551BP

PATIENT
  Age: 67 Year
  Sex: Male

DRUGS (1)
  1. SPIRIVA [Suspect]
     Indication: LUNG LOBECTOMY
     Dosage: 18MCG
     Route: 055
     Dates: start: 20050101, end: 20050101

REACTIONS (2)
  - DRY MOUTH [None]
  - PROSTATE CANCER [None]
